FAERS Safety Report 15984313 (Version 2)
Quarter: 2019Q1

REPORT INFORMATION
  Report Type: Report from Study
  Country: CA (occurrence: CA)
  Receive Date: 20190220
  Receipt Date: 20190304
  Transmission Date: 20190418
  Serious: Yes (Other)
  Sender: FDA-Public Use
  Company Number: CA-ROCHE-2262662

PATIENT
  Age: 39 Year
  Sex: Female
  Weight: 73.5 kg

DRUGS (5)
  1. OCRELIZUMAB. [Suspect]
     Active Substance: OCRELIZUMAB
     Indication: RELAPSING MULTIPLE SCLEROSIS
     Dosage: ADMINISTERED AS TWO 300 MG INFUSION ON DAY 1 AND 15, AND THEN AS A SINGLE INFUSION OF 600 MG ON WEEK
     Route: 042
     Dates: start: 20170220
  2. ZANTAC [Concomitant]
     Active Substance: RANITIDINE HYDROCHLORIDE
     Route: 065
     Dates: start: 20170305
  3. JAYDESS [Concomitant]
     Active Substance: LEVONORGESTREL
     Route: 065
     Dates: start: 20171209
  4. ROGAINE [Concomitant]
     Active Substance: MINOXIDIL
     Route: 061
     Dates: start: 20180226
  5. REACTINE (CANADA) [Concomitant]
     Active Substance: CETIRIZINE HYDROCHLORIDE
     Route: 065
     Dates: start: 20170305

REACTIONS (1)
  - Basal cell carcinoma [Not Recovered/Not Resolved]

NARRATIVE: CASE EVENT DATE: 201807
